FAERS Safety Report 6269247-6 (Version None)
Quarter: 2009Q3

REPORT INFORMATION
  Report Type: 
  Country: None (occurrence: None)
  Receive Date: 20090713
  Receipt Date: 20090628
  Transmission Date: 20100115
  Serious: Yes (Other)
  Sender: FDA-Public Use
  Company Number: 1-18978371

PATIENT
  Age: 21 Year
  Sex: Female

DRUGS (1)
  1. MINOCIN [Suspect]
     Indication: ACNE
     Dosage: 100 MG PER DAY, ORAL
     Route: 048

REACTIONS (5)
  - DECREASED APPETITE [None]
  - HYPERHIDROSIS [None]
  - ORGANISING PNEUMONIA [None]
  - SPUTUM DISCOLOURED [None]
  - WEIGHT DECREASED [None]
